FAERS Safety Report 20783083 (Version 2)
Quarter: 2025Q2

REPORT INFORMATION
  Report Type: Report from Study
  Country: CA (occurrence: CA)
  Receive Date: 20220504
  Receipt Date: 20250422
  Transmission Date: 20250717
  Serious: Yes (Other)
  Sender: PFIZER
  Company Number: CA-TAKEDA-2022TUS005510

PATIENT
  Age: 42 Year
  Sex: Female

DRUGS (14)
  1. PANTOPRAZOLE SODIUM [Suspect]
     Active Substance: PANTOPRAZOLE SODIUM
     Dosage: 40 MILLIGRAM, BID
     Route: 065
     Dates: start: 20210422
  2. ENTYVIO [Suspect]
     Active Substance: VEDOLIZUMAB
     Indication: Crohn^s disease
     Route: 042
     Dates: start: 20200728
  3. ENTYVIO [Suspect]
     Active Substance: VEDOLIZUMAB
     Route: 042
  4. DEXILANT [Suspect]
     Active Substance: DEXLANSOPRAZOLE
     Route: 065
  5. PENTASA [Concomitant]
     Active Substance: MESALAMINE
     Dates: start: 20190731
  6. ENTOCORT [Concomitant]
     Active Substance: BUDESONIDE
  7. ENTOCORT [Concomitant]
     Active Substance: BUDESONIDE
  8. SERAX [OXAZEPAM] [Concomitant]
     Dates: start: 20210318
  9. TRINTELLIX [Concomitant]
     Active Substance: VORTIOXETINE HYDROBROMIDE
     Dosage: 5 MILLIGRAM, QD
     Dates: start: 20210416
  10. TRINTELLIX [Concomitant]
     Active Substance: VORTIOXETINE HYDROBROMIDE
     Route: 048
  11. IRON [Concomitant]
     Active Substance: IRON
     Dosage: 300 MILLIGRAM, QD
     Dates: start: 20210331
  12. VALTREX [Concomitant]
     Active Substance: VALACYCLOVIR HYDROCHLORIDE
     Route: 048
  13. CHOLECALCIFEROL [Concomitant]
     Active Substance: CHOLECALCIFEROL
     Route: 048
  14. DESOGESTREL\ETHINYL ESTRADIOL [Concomitant]
     Active Substance: DESOGESTREL\ETHINYL ESTRADIOL

REACTIONS (2)
  - Carpal tunnel syndrome [Recovering/Resolving]
  - Diarrhoea [Recovering/Resolving]

NARRATIVE: CASE EVENT DATE: 20220124
